FAERS Safety Report 8863173 (Version 1)
Quarter: 2012Q4

REPORT INFORMATION
  Report Type: 
  Country: FR (occurrence: FR)
  Receive Date: 20121026
  Receipt Date: 20121026
  Transmission Date: 20130627
  Serious: Yes (Other)
  Sender: FDA-Public Use
  Company Number: FR-ROCHE-1147179

PATIENT
  Age: 86 Year
  Sex: Female

DRUGS (6)
  1. ROCEPHINE [Suspect]
     Indication: LUNG DISORDER
     Route: 048
     Dates: start: 20120611, end: 20120618
  2. TAVANIC [Suspect]
     Indication: LUNG DISORDER
     Route: 048
     Dates: start: 20120619, end: 20120625
  3. ARIXTRA [Concomitant]
     Indication: THROMBOSIS PROPHYLAXIS
     Dosage: 7.5 mg/ 0.6 ml
     Route: 042
     Dates: start: 20120618, end: 20120618
  4. AUGMENTIN [Concomitant]
     Indication: LUNG DISORDER
     Route: 042
     Dates: start: 20120626, end: 20120701
  5. COVERSYL [Concomitant]
     Indication: HYPERTENSION
     Route: 048
  6. SOLU-MEDROL [Concomitant]
     Indication: LUNG DISORDER
     Route: 042
     Dates: start: 20120626, end: 20120712

REACTIONS (2)
  - Gamma-glutamyltransferase increased [Recovered/Resolved]
  - Blood alkaline phosphatase increased [Recovered/Resolved]
